FAERS Safety Report 25997949 (Version 1)
Quarter: 2025Q4

REPORT INFORMATION
  Report Type: Spontaneous
  Country: EU (occurrence: EU)
  Receive Date: 20251105
  Receipt Date: 20251105
  Transmission Date: 20260118
  Serious: Yes (Hospitalization)
  Sender: CHEPLAPHARM
  Company Number: None

PATIENT
  Age: 42 Year
  Sex: Male

DRUGS (16)
  1. OLANZAPINE [Suspect]
     Active Substance: OLANZAPINE
     Indication: Obsessive-compulsive disorder
     Dosage: DAILY DOSE: 30 MILLIGRAM
     Route: 048
     Dates: start: 202503, end: 20250724
  2. QUETIAPINE [Suspect]
     Active Substance: QUETIAPINE
     Indication: Obsessive-compulsive disorder
     Dosage: DAILY DOSE: 400 MILLIGRAM
     Route: 048
     Dates: start: 202503, end: 20250724
  3. QUETIAPINE [Suspect]
     Active Substance: QUETIAPINE
     Indication: Obsessive-compulsive disorder
     Dosage: REINTRODUCTION ; 50-50-150 MG?DAILY DOSE: 250 MILLIGRAM
  4. QUETIAPINE [Suspect]
     Active Substance: QUETIAPINE
     Indication: Obsessive-compulsive disorder
     Dosage: RESCUE DOSES OF 50 MG IF AGITATION OCCURS
     Route: 048
  5. CLONAZEPAM [Suspect]
     Active Substance: CLONAZEPAM
     Indication: Obsessive-compulsive disorder
     Dosage: DAILY DOSE: 3 MILLIGRAM
     Route: 048
     Dates: start: 202503, end: 20250724
  6. CLONAZEPAM [Suspect]
     Active Substance: CLONAZEPAM
     Indication: Obsessive-compulsive disorder
     Dosage: 1-0-1?DAILY DOSE: 1 MILLIGRAM
  7. HALOPERIDOL [Suspect]
     Active Substance: HALOPERIDOL
     Indication: Obsessive-compulsive disorder
     Dosage: DAILY DOSE: 30 MILLIGRAM
     Route: 048
     Dates: start: 202503, end: 20250724
  8. LEVOMEPROMAZINE [Suspect]
     Active Substance: LEVOMEPROMAZINE
     Indication: Obsessive-compulsive disorder
     Dosage: DAILY DOSE: 500 MILLIGRAM
     Route: 048
     Dates: start: 202503, end: 20250724
  9. VALPROATE SODIUM [Suspect]
     Active Substance: VALPROATE SODIUM
     Indication: Obsessive-compulsive disorder
     Dosage: 2000-0-2500 MG ?DAILY DOSE: 4500 MILLIGRAM
     Route: 048
     Dates: start: 202503
  10. LEVOTHYROXINE [Concomitant]
     Active Substance: LEVOTHYROXINE
     Indication: Hypothyroidism
     Dosage: ON AN EMPTY STOMACH?DAILY DOSE: 75 MICROGRAM
  11. LEVOTHYROXINE [Concomitant]
     Active Substance: LEVOTHYROXINE
     Indication: Prostatitis
     Dosage: ON AN EMPTY STOMACH?DAILY DOSE: 75 MICROGRAM
  12. ATROVENT [Concomitant]
     Active Substance: IPRATROPIUM BROMIDE
  13. Ferbisol [Concomitant]
     Dosage: DAILY DOSE: 100 MILLIGRAM
  14. LANSOPRAZOLE [Concomitant]
     Active Substance: LANSOPRAZOLE
     Dosage: DAILY DOSE: 15 MILLIGRAM
  15. FLUOXETINE [Concomitant]
     Active Substance: FLUOXETINE HYDROCHLORIDE
  16. GLUCAGEN [Concomitant]
     Active Substance: GLUCAGON HYDROCHLORIDE

REACTIONS (5)
  - Autonomic nervous system imbalance [Unknown]
  - Myelosuppression [Unknown]
  - Depressed level of consciousness [Unknown]
  - Respiratory rate decreased [Unknown]
  - Off label use [Not Recovered/Not Resolved]
